FAERS Safety Report 7579721-8 (Version None)
Quarter: 2011Q2

REPORT INFORMATION
  Report Type: 
  Country: None (occurrence: None)
  Receive Date: 20110629
  Receipt Date: 20110621
  Transmission Date: 20111010
  Serious: Yes (Hospitalization, Other)
  Sender: FDA-Public Use
  Company Number: JP-ASTELLAS-2011JP003407

PATIENT
  Sex: Female
  Weight: 15.1 kg

DRUGS (19)
  1. PROGRAF [Suspect]
     Dosage: 0.2 MG, BID
     Route: 048
     Dates: start: 20110505, end: 20110506
  2. PROGRAF [Suspect]
     Dosage: 0.5 MG, BID
     Route: 048
     Dates: start: 20110421, end: 20110502
  3. LAC B [Concomitant]
     Indication: GASTROENTERITIS
     Dosage: 0.4 G, TID
     Route: 048
     Dates: start: 20110419, end: 20110504
  4. PYRINAZIN [Concomitant]
     Indication: GASTROENTERITIS
     Dosage: 0.1 G, BID
     Route: 065
     Dates: start: 20110419, end: 20110425
  5. PYRINAZIN [Concomitant]
     Indication: UPPER RESPIRATORY TRACT INFLAMMATION
  6. FLOMAX [Concomitant]
     Indication: UPPER RESPIRATORY TRACT INFLAMMATION
  7. MUCODYNE [Concomitant]
     Indication: GASTROENTERITIS
     Dosage: 40 MG, TID
     Route: 048
     Dates: start: 20110428, end: 20110504
  8. MUCODYNE [Concomitant]
     Indication: UPPER RESPIRATORY TRACT INFLAMMATION
  9. PROGRAF [Suspect]
     Indication: CONGENITAL ABSENCE OF BILE DUCTS
     Dosage: 0.5 MG, BID
     Route: 048
     Dates: start: 20110505, end: 20110506
  10. FLOMAX [Concomitant]
     Indication: GASTROENTERITIS
     Dosage: 45 MG, TID
     Route: 048
     Dates: start: 20110419, end: 20110504
  11. HOKUNALIN [Concomitant]
     Indication: GASTROENTERITIS
     Dosage: 1 MG, UID/QD
     Route: 062
     Dates: start: 20110504
  12. PROGRAF [Suspect]
     Dosage: 0.5 MG, BID
     Route: 048
     Dates: start: 20070605
  13. PROGRAF [Suspect]
     Dosage: 1 MG, UNKNOWN/D
     Route: 048
     Dates: end: 20110420
  14. HOKUNALIN [Concomitant]
     Indication: UPPER RESPIRATORY TRACT INFLAMMATION
  15. PROGRAF [Suspect]
     Dosage: 0.2 MG, BID
     Route: 048
     Dates: start: 20110421, end: 20110502
  16. PROGRAF [Suspect]
     Dosage: 0.2 MG, UID/QD
     Route: 048
     Dates: start: 20110503, end: 20110504
  17. LAC B [Concomitant]
     Indication: UPPER RESPIRATORY TRACT INFLAMMATION
  18. PROGRAF [Suspect]
     Dosage: 0.5 MG, UID/QD
     Route: 048
     Dates: start: 20110503, end: 20110504
  19. PROGRAF [Suspect]
     Dosage: 0.2 MG, BID
     Route: 048
     Dates: start: 20070605

REACTIONS (4)
  - DRUG LEVEL INCREASED [None]
  - OTITIS MEDIA ACUTE [None]
  - GASTROENTERITIS [None]
  - UPPER RESPIRATORY TRACT INFLAMMATION [None]
